FAERS Safety Report 9248165 (Version 1)
Quarter: 2013Q1

REPORT INFORMATION
  Report Type: Spontaneous
  Country: US (occurrence: None)
  Receive Date: 20130305
  Receipt Date: 20130305
  Transmission Date: 20140127
  Serious: Yes (Other)
  Sender: FDA-Public Use
  Company Number: 163-21880-12101383

PATIENT
  Age: 54 Year
  Sex: Male
  Weight: 74.84 kg

DRUGS (4)
  1. REVLIMID [Suspect]
     Indication: PLASMA CELL MYELOMA
     Dosage: 10 MG, 14 IN 14 D, PO
     Route: 048
     Dates: start: 20120716
  2. ALLEGRA [Concomitant]
  3. ARANESP (DARBEPOETIN ALFA) [Concomitant]
  4. VELCADE (BORTEZOMIB) [Concomitant]

REACTIONS (1)
  - Thrombosis [None]
